FAERS Safety Report 5933995-5 (Version None)
Quarter: 2008Q4

REPORT INFORMATION
  Report Type: 
  Country: None (occurrence: None)
  Receive Date: 20081029
  Receipt Date: 20081023
  Transmission Date: 20090506
  Serious: Yes (Death, Life-Threatening)
  Sender: FDA-Public Use
  Company Number: PL-AVENTIS-200815761EU

PATIENT
  Age: 70 Year
  Sex: Male
  Weight: 76 kg

DRUGS (4)
  1. ENOXAPARIN SODIUM [Suspect]
     Indication: THROMBOSIS PROPHYLAXIS
     Route: 058
     Dates: start: 20081016, end: 20081018
  2. ISOSORBIDE MONONITRATE [Concomitant]
     Indication: PROPHYLAXIS
     Dates: start: 20070101
  3. METOCARD [Concomitant]
     Indication: PROPHYLAXIS
     Dates: start: 19970101
  4. AMIODARONE HYDROCHLORIDE [Concomitant]
     Indication: PROPHYLAXIS
     Dates: start: 20070101

REACTIONS (1)
  - PULMONARY EMBOLISM [None]
